FAERS Safety Report 7708860 (Version 2)
Quarter: 2013Q1

REPORT INFORMATION
  Report Type: Spontaneous
  Country: US (occurrence: US)
  Receive Date: 20101214
  Receipt Date: 20130102
  Transmission Date: 20140127
  Serious: No
  Sender: FDA-Public Use
  Company Number: US-ASTRAZENECA-2010SE25515

PATIENT
  Age: 73 Year
  Sex: Female

DRUGS (8)
  1. NEXIUM [Suspect]
     Route: 048
  2. CRESTOR [Suspect]
     Indication: BLOOD CHOLESTEROL INCREASED
     Route: 048
     Dates: start: 201001
  3. FEMARA [Concomitant]
     Indication: BREAST CANCER
  4. PREDNISONE [Concomitant]
  5. SINGULAIR [Concomitant]
     Indication: ASTHMA
  6. KLONOPIN [Concomitant]
  7. SYMBICORT [Concomitant]
     Indication: ASTHMA
  8. XOPENEX [Concomitant]
     Indication: ASTHMA

REACTIONS (4)
  - Hernia [Unknown]
  - Low density lipoprotein abnormal [Not Recovered/Not Resolved]
  - Vocal cord thickening [Unknown]
  - Drug ineffective [Unknown]
